FAERS Safety Report 23411739 (Version 1)
Quarter: 2024Q1

REPORT INFORMATION
  Report Type: Spontaneous
  Country: FR (occurrence: FR)
  Receive Date: 20240117
  Receipt Date: 20240117
  Transmission Date: 20240410
  Serious: Yes (Other)
  Sender: FDA-Public Use
  Company Number: None

PATIENT
  Age: 76 Year
  Sex: Male
  Weight: 70 kg

DRUGS (12)
  1. DALBAVANCIN [Suspect]
     Active Substance: DALBAVANCIN
     Indication: Purulent discharge
     Dosage: TIME INTERVAL: AS NECESSARY: ACTUAL: 1500 MG AT DAY 1 AND DAY 15?EVERY 15 DAYS?(CHLORHYDRATE DE)
     Route: 042
     Dates: start: 20231114, end: 20231127
  2. ALFUZOSIN HYDROCHLORIDE [Concomitant]
     Active Substance: ALFUZOSIN HYDROCHLORIDE
     Indication: Benign prostatic hyperplasia
     Route: 048
  3. METHOTREXATE [Concomitant]
     Active Substance: METHOTREXATE
     Indication: Product used for unknown indication
     Route: 048
  4. DAPTOMYCIN [Suspect]
     Active Substance: DAPTOMYCIN
     Indication: Purulent discharge
     Route: 042
     Dates: start: 20231026, end: 20231115
  5. .ALPHA.-TOCOPHEROL ACETATE, DL- [Concomitant]
     Active Substance: .ALPHA.-TOCOPHEROL ACETATE, DL-
     Indication: Product used for unknown indication
     Route: 048
  6. PRAVASTATIN SODIUM [Concomitant]
     Active Substance: PRAVASTATIN SODIUM
     Indication: Blood cholesterol abnormal
     Dosage: 40 MILLIGRAM
     Route: 048
  7. FOLIC ACID [Concomitant]
     Active Substance: FOLIC ACID
     Indication: Product used for unknown indication
     Route: 048
  8. CEFEPIME [Suspect]
     Active Substance: CEFEPIME HYDROCHLORIDE
     Indication: Purulent discharge
     Route: 042
     Dates: start: 20231026, end: 20231201
  9. METFORMIN HYDROCHLORIDE [Concomitant]
     Active Substance: METFORMIN HYDROCHLORIDE
     Indication: Product used for unknown indication
     Dosage: 850 MILLIGRAM
     Route: 048
  10. TRAMADOL [Concomitant]
     Active Substance: TRAMADOL\TRAMADOL HYDROCHLORIDE
     Indication: Product used for unknown indication
     Dosage: 50 MILLIGRAM
     Route: 048
  11. ASPIRIN [Concomitant]
     Active Substance: ASPIRIN
     Indication: Product used for unknown indication
     Route: 048
  12. ENOXAPARIN SODIUM [Concomitant]
     Active Substance: ENOXAPARIN SODIUM
     Indication: Product used for unknown indication
     Dosage: (40 MG)/0,4 ML 4000 IU
     Route: 048

REACTIONS (2)
  - Acute kidney injury [Not Recovered/Not Resolved]
  - Renal tubular necrosis [Not Recovered/Not Resolved]

NARRATIVE: CASE EVENT DATE: 20231127
